FAERS Safety Report 8132068-3 (Version None)
Quarter: 2012Q1

REPORT INFORMATION
  Report Type: 
  Country: None (occurrence: None)
  Receive Date: 20120213
  Receipt Date: 20120208
  Transmission Date: 20120608
  Serious: Yes (Other)
  Sender: FDA-Public Use
  Company Number: US-PFIZER INC-2011278254

PATIENT
  Sex: Female

DRUGS (3)
  1. ZOLOFT [Suspect]
     Dosage: 50 MG, 1X/DAY
  2. DILANTIN [Suspect]
     Dosage: 300 MG, 1X/DAY (100MG, 3CAPS @ BEDTIME)
  3. XANAX [Suspect]
     Dosage: UNK

REACTIONS (5)
  - CONVULSION [None]
  - HEAD INJURY [None]
  - MEMORY IMPAIRMENT [None]
  - ANXIETY [None]
  - DEPRESSION [None]
